FAERS Safety Report 6857808-2 (Version None)
Quarter: 2010Q3

REPORT INFORMATION
  Report Type: 
  Country: None (occurrence: None)
  Receive Date: 20100719
  Receipt Date: 20080502
  Transmission Date: 20110219
  Serious: No
  Sender: FDA-Public Use
  Company Number: US-PFIZER INC-2008010626

PATIENT
  Sex: Female
  Weight: 53.636 kg

DRUGS (7)
  1. CHANTIX [Suspect]
     Indication: SMOKING CESSATION THERAPY
     Route: 048
     Dates: start: 20080112
  2. ANTIHYPERTENSIVES [Concomitant]
     Indication: HYPERTENSION
  3. CRESTOR [Concomitant]
     Indication: BLOOD CHOLESTEROL INCREASED
  4. NEBIVOLOL [Concomitant]
  5. ACTONEL [Concomitant]
  6. FORADIL [Concomitant]
  7. ACETYLSALICYLIC ACID [Concomitant]

REACTIONS (6)
  - ABDOMINAL DISCOMFORT [None]
  - ABDOMINAL PAIN UPPER [None]
  - FEELING ABNORMAL [None]
  - INFLAMMATION [None]
  - NAUSEA [None]
  - RASH [None]
